FAERS Safety Report 19642033 (Version 2)
Quarter: 2021Q4

REPORT INFORMATION
  Report Type: Spontaneous
  Country: US (occurrence: US)
  Receive Date: 20210731
  Receipt Date: 20211001
  Transmission Date: 20220303
  Serious: Yes (Other)
  Sender: FDA-Public Use
  Company Number: US-JNJFOC-20210758324

PATIENT
  Sex: Female

DRUGS (9)
  1. NEUTROGENA ULTRA SHEER BODY MIST SUNSCRN BR?D SPECT SPF 30 (AV\HOM\OCT [Suspect]
     Active Substance: AVOBENZONE\HOMOSALATE\OCTISALATE\OCTOCRYLENE\OXYBENZONE
     Indication: Product used for unknown indication
     Route: 061
  2. NEUTROGENA ULTRA SHEER BODY MIST SUNSCREEN BROAD SPECTRUM SPF 30 (AVO\ [Suspect]
     Active Substance: AVOBENZONE\HOMOSALATE\OCTISALATE\OCTOCRYLENE
     Indication: Prophylaxis against solar radiation
     Dosage: JUST ENOUGH FOR SKIN, EVERYDAY
     Route: 061
  3. NEUTROGENA BEACH DEF WATER PLUS SUN PROTECT BR?D SPECT SPF 70 (AV\HOM\ [Suspect]
     Active Substance: AVOBENZONE\HOMOSALATE\OCTISALATE\OCTOCRYLENE
     Indication: Product used for unknown indication
     Route: 061
  4. NEUTROGENA CLEAR FACE BREAK OUT FREE SUNSCREEN BROAD SPECTRUM SPF55 [Suspect]
     Active Substance: AVOBENZONE\HOMOSALATE\OCTISALATE\OCTOCRYLENE\OXYBENZONE
     Indication: Product used for unknown indication
     Route: 061
  5. NEUTROGENA ULTRA SHEER BODY MIST SUNSCREEN BROAD SPECTRUM 70 (AVO\HOM\ [Suspect]
     Active Substance: AVOBENZONE\HOMOSALATE\OCTISALATE\OCTOCRYLENE
     Indication: Product used for unknown indication
     Route: 061
  6. NEUTROGENA ULTRA SHEER BODY MIST SUNSCREEN BROAD SPECTRUM SPF 30 (AVO\ [Suspect]
     Active Substance: AVOBENZONE\HOMOSALATE\OCTISALATE\OCTOCRYLENE
     Indication: Product used for unknown indication
     Route: 061
  7. NEUTROGENA ULTRA SHEER BODY MIST SUNSCRN BR?D SPECT SPF 30 (AV\HOM\OCT [Suspect]
     Active Substance: AVOBENZONE\HOMOSALATE\OCTISALATE\OCTOCRYLENE\OXYBENZONE
     Indication: Product used for unknown indication
     Route: 061
  8. NEUTROGENA BEACH DEF WATER PLUS SUN PROT BR?D SPECT SPF 70 (AV\HOM\OCT [Suspect]
     Active Substance: AVOBENZONE\HOMOSALATE\OCTISALATE\OCTOCRYLENE\OXYBENZONE
     Indication: Product used for unknown indication
     Route: 061
  9. NEUTROGENA ULTRA SHEER BODY MIST SUNSCREEN BROAD SPECTRUM 70 (AVO\HOM\ [Suspect]
     Active Substance: AVOBENZONE\HOMOSALATE\OCTISALATE\OCTOCRYLENE\OXYBENZONE
     Indication: Product used for unknown indication
     Route: 061

REACTIONS (1)
  - Skin cancer [Unknown]

NARRATIVE: CASE EVENT DATE: 20200101
